FAERS Safety Report 20181722 (Version 1)
Quarter: 2021Q4

REPORT INFORMATION
  Report Type: Spontaneous
  Country: US (occurrence: US)
  Receive Date: 20211214
  Receipt Date: 20211214
  Transmission Date: 20220303
  Serious: Yes (Hospitalization)
  Sender: FDA-Public Use
  Company Number: US-ELI_LILLY_AND_COMPANY-US202112004531

PATIENT
  Sex: Female

DRUGS (2)
  1. GLUCAGON [Suspect]
     Active Substance: GLUCAGON
     Indication: Product used for unknown indication
     Dosage: UNK UNK, UNKNOWN
     Route: 065
  2. GLUCAGON [Suspect]
     Active Substance: GLUCAGON
     Dosage: UNK UNK, UNKNOWN
     Route: 065

REACTIONS (1)
  - Cardiac disorder [Unknown]
